FAERS Safety Report 7252607-4 (Version None)
Quarter: 2011Q1

REPORT INFORMATION
  Report Type: 
  Country: None (occurrence: None)
  Receive Date: 20110129
  Receipt Date: 20100422
  Transmission Date: 20110831
  Serious: No
  Sender: FDA-Public Use
  Company Number: US-ABBOTT-10P-163-0640219-00

PATIENT
  Sex: Female
  Weight: 73.548 kg

DRUGS (6)
  1. PROZAC [Concomitant]
     Indication: PRODUCT USED FOR UNKNOWN INDICATION
  2. LISINOPRIL [Concomitant]
     Indication: PRODUCT USED FOR UNKNOWN INDICATION
  3. BUSPAR [Concomitant]
     Indication: PRODUCT USED FOR UNKNOWN INDICATION
  4. NORVASC [Concomitant]
     Indication: PRODUCT USED FOR UNKNOWN INDICATION
  5. MERCAPTOPURINE [Concomitant]
     Indication: PRODUCT USED FOR UNKNOWN INDICATION
  6. HUMIRA [Suspect]
     Indication: CROHN'S DISEASE
     Dates: start: 20100317

REACTIONS (4)
  - NECK PAIN [None]
  - PRURITUS [None]
  - UPPER RESPIRATORY TRACT INFECTION [None]
  - HEADACHE [None]
